FAERS Safety Report 24869483 (Version 3)
Quarter: 2025Q1

REPORT INFORMATION
  Report Type: Report from Study
  Country: AU (occurrence: AU)
  Receive Date: 20250121
  Receipt Date: 20250224
  Transmission Date: 20250409
  Serious: Yes (Hospitalization)
  Sender: BAYER HEALTHCARE PHARMACEUTICALS INC.
  Company Number: AU-BAYER-2025A007799

PATIENT
  Age: 1 Month
  Sex: Male
  Weight: 5.3 kg

DRUGS (7)
  1. LAROTRECTINIB [Suspect]
     Active Substance: LAROTRECTINIB
     Indication: Congenital fibrosarcoma
     Dosage: 20 ML, BID
     Route: 048
     Dates: start: 20241227
  2. LAROTRECTINIB [Suspect]
     Active Substance: LAROTRECTINIB
     Indication: NTRK gene fusion cancer
     Dosage: 10 ML, BID
     Route: 048
     Dates: start: 20250130
  3. LACTULOSE [Concomitant]
     Active Substance: LACTULOSE
     Indication: Constipation
     Route: 048
  4. COMOXYL [Concomitant]
     Indication: Constipation
     Route: 048
  5. ACETAMINOPHEN [Concomitant]
     Active Substance: ACETAMINOPHEN
     Indication: Pain
     Route: 048
  6. OMEPRAZOLE [Concomitant]
     Active Substance: OMEPRAZOLE
     Indication: Gastrooesophageal reflux disease
     Route: 048
  7. VITAMIN D [Concomitant]
     Active Substance: VITAMIN D NOS
     Route: 048

REACTIONS (4)
  - Interstitial lung disease [Recovering/Resolving]
  - Oxygen saturation decreased [Recovering/Resolving]
  - Hypotonia [Not Recovered/Not Resolved]
  - Myoclonus [None]

NARRATIVE: CASE EVENT DATE: 20250110
